FAERS Safety Report 6649302-9 (Version None)
Quarter: 2010Q1

REPORT INFORMATION
  Report Type: 
  Country: None (occurrence: None)
  Receive Date: 20100324
  Receipt Date: 20100317
  Transmission Date: 20100710
  Serious: Yes (Hospitalization, Other)
  Sender: FDA-Public Use
  Company Number: PHHO2008US13479

PATIENT
  Sex: Female
  Weight: 44.8 kg

DRUGS (9)
  1. ZOMETA [Suspect]
     Indication: METASTASES TO BONE
     Dosage: 4 MG, EVERY MONTHLY
     Route: 042
     Dates: start: 20080501, end: 20080707
  2. ZOMETA [Suspect]
     Dosage: NO TREATMENT
     Dates: start: 20080708, end: 20090621
  3. ZOMETA [Suspect]
     Dosage: 4MG, EVERY 3 MONTHS
     Dates: start: 20090622
  4. SUNITINIB MALATE [Suspect]
     Indication: BREAST CANCER METASTATIC
     Dosage: 25 MG DAILY
     Route: 048
     Dates: start: 20080623, end: 20080714
  5. TAXOL [Concomitant]
     Indication: BREAST CANCER METASTATIC
     Dosage: 144 MG
     Dates: start: 20080623
  6. TAXOL [Concomitant]
     Dosage: 105 MG
     Dates: start: 20090804
  7. ALLOPURINOL [Concomitant]
  8. EVAC-Q-KIT [Concomitant]
  9. PREVACID [Concomitant]

REACTIONS (12)
  - AZOTAEMIA [None]
  - BLOOD HUMAN CHORIONIC GONADOTROPIN INCREASED [None]
  - BONE PAIN [None]
  - CONSTIPATION [None]
  - DYSPNOEA [None]
  - HYPERURICAEMIA [None]
  - HYPOCALCAEMIA [None]
  - LIVER FUNCTION TEST ABNORMAL [None]
  - MUSCLE SPASMS [None]
  - NAUSEA [None]
  - PARAESTHESIA [None]
  - PELVIC FLUID COLLECTION [None]
